FAERS Safety Report 4667002-1 (Version None)
Quarter: 2005Q2

REPORT INFORMATION
  Report Type: 
  Country: None (occurrence: None)
  Receive Date: 20050520
  Receipt Date: 20040617
  Transmission Date: 20051028
  Serious: No
  Sender: FDA-Public Use
  Company Number: PHEH2004US06658

PATIENT
  Age: 75 Year
  Sex: Female

DRUGS (3)
  1. NAVELBINE [Concomitant]
     Indication: BREAST CANCER
     Dosage: 50 MG, QMO
     Dates: start: 20030930
  2. AREDIA [Suspect]
     Indication: METASTASES TO BONE
     Dosage: 90 MG, QMO
     Dates: start: 20040217
  3. DECADRON [Concomitant]
     Indication: PROPHYLAXIS OF NAUSEA AND VOMITING
     Dosage: 20 MG IV WITH CHEMOTHERAPY
     Dates: start: 20030930

REACTIONS (3)
  - BONE FORMATION INCREASED [None]
  - EXOSTOSIS [None]
  - ORAL SURGERY [None]
